FAERS Safety Report 7132138-2 (Version None)
Quarter: 2010Q4

REPORT INFORMATION
  Report Type: 
  Country: None (occurrence: None)
  Receive Date: 20101202
  Receipt Date: 20101123
  Transmission Date: 20110411
  Serious: Yes (Hospitalization)
  Sender: FDA-Public Use
  Company Number: ES-JNJFOC-20101104304

PATIENT
  Age: 72 Year
  Sex: Female
  Weight: 95 kg

DRUGS (6)
  1. REMICADE [Suspect]
     Indication: CROHN'S DISEASE
     Route: 042
  2. DACORTIN [Concomitant]
     Indication: SPONDYLOARTHROPATHY
     Route: 048
  3. FOSAMAX [Concomitant]
  4. HIDROSALURETIL [Concomitant]
     Indication: HYPERTENSION
  5. IMUREL [Concomitant]
     Indication: ILEITIS
     Route: 048
  6. LORAZEPAM [Concomitant]
     Indication: INSOMNIA

REACTIONS (4)
  - BACILLARY ANGIOMATOSIS [None]
  - CAT SCRATCH DISEASE [None]
  - MENINGIOMA [None]
  - PYREXIA [None]
